FAERS Safety Report 5881499-0 (Version None)
Quarter: 2008Q3

REPORT INFORMATION
  Report Type: 
  Country: None (occurrence: None)
  Receive Date: 20080910
  Receipt Date: 20080828
  Transmission Date: 20090109
  Serious: Yes (Hospitalization, Other)
  Sender: FDA-Public Use
  Company Number: DSA_32364_2008

PATIENT
  Age: 37 Year
  Sex: Female

DRUGS (5)
  1. LORAZEPAM [Suspect]
     Indication: AGITATION
     Dosage: (DF)
  2. OLANZAPINE [Suspect]
     Indication: BIPOLAR I DISORDER
     Dosage: (10 MG QD ORAL), (5 MG BID ORAL)
     Route: 048
     Dates: start: 20080501, end: 20080501
  3. OLANZAPINE [Suspect]
     Indication: SLEEP DISORDER
     Dosage: (10 MG QD ORAL), (5 MG BID ORAL)
     Route: 048
     Dates: start: 20080501, end: 20080501
  4. OLANZAPINE [Suspect]
     Indication: BIPOLAR I DISORDER
     Dosage: (10 MG QD ORAL), (5 MG BID ORAL)
     Route: 048
     Dates: start: 20080507
  5. OLANZAPINE [Suspect]
     Indication: SLEEP DISORDER
     Dosage: (10 MG QD ORAL), (5 MG BID ORAL)
     Route: 048
     Dates: start: 20080507

REACTIONS (6)
  - BIPOLAR I DISORDER [None]
  - CONDITION AGGRAVATED [None]
  - DERMATITIS ALLERGIC [None]
  - DYSPNOEA [None]
  - RASH ERYTHEMATOUS [None]
  - RASH PRURITIC [None]
